FAERS Safety Report 18103635 (Version 1)
Quarter: 2020Q3

REPORT INFORMATION
  Report Type: Spontaneous
  Country: US (occurrence: US)
  Receive Date: 20200731
  Receipt Date: 20200731
  Transmission Date: 20201103
  Serious: Yes (Hospitalization)
  Sender: FDA-Public Use
  Company Number: None

PATIENT
  Sex: Female

DRUGS (1)
  1. TACROLIMUS (ACCORD) [Suspect]
     Active Substance: TACROLIMUS
     Indication: LUNG TRANSPLANT
     Route: 048
     Dates: start: 20200324

REACTIONS (3)
  - Nausea [None]
  - Headache [None]
  - Tremor [None]
